FAERS Safety Report 9018770 (Version 2)
Quarter: 2013Q1

REPORT INFORMATION
  Report Type: Report from Study
  Country: JP (occurrence: JP)
  Receive Date: 20130118
  Receipt Date: 20130212
  Transmission Date: 20140127
  Serious: Yes (Hospitalization, Disabling, Other)
  Sender: FDA-Public Use
  Company Number: JP-PFIZER INC-2013018846

PATIENT
  Age: 55 Year
  Sex: Female
  Weight: 40.4 kg

DRUGS (14)
  1. REVATIO [Suspect]
     Indication: PULMONARY ARTERIAL HYPERTENSION
     Dosage: 20 MG, 3X/DAY
     Route: 048
     Dates: start: 20120705
  2. PREDONINE [Suspect]
     Indication: INTERSTITIAL LUNG DISEASE
     Dosage: UNK
     Route: 048
     Dates: start: 20120817
  3. AMBRISENTAN [Concomitant]
     Indication: PULMONARY HYPERTENSION
     Dosage: UNK
     Route: 048
     Dates: start: 20120712
  4. BAKTAR [Concomitant]
     Indication: INFECTION PROPHYLAXIS
     Dosage: UNK
     Route: 048
  5. BONALEN(ALENDRONATE SODIUM) [Concomitant]
     Indication: OSTEOPOROSIS
     Dosage: UNK
     Route: 048
  6. MAGMITT [Concomitant]
     Indication: CONSTIPATION
     Dosage: UNK
     Route: 048
  7. AMLODIN [Concomitant]
     Indication: HYPERTENSION
     Dosage: UNK
     Route: 048
  8. BARACLUDE [Concomitant]
     Indication: HEPATITIS B
     Dosage: UNK
     Route: 048
  9. PIMOBENDAN [Concomitant]
     Dosage: UNK
     Route: 048
     Dates: start: 20120712
  10. FERROSTEC [Concomitant]
     Indication: IRON DEFICIENCY ANAEMIA
     Dosage: UNK
     Route: 048
     Dates: start: 20120726
  11. WARFARIN [Concomitant]
     Indication: PULMONARY HYPERTENSION
     Dosage: UNK
     Route: 048
     Dates: start: 20120705
  12. DOBUTREX [Concomitant]
     Dosage: UNK
     Route: 042
     Dates: end: 20120905
  13. CEFAMEZIN ^FUJISAWA^ [Concomitant]
     Indication: BRONCHITIS
     Dosage: UNK
     Route: 042
     Dates: end: 20120719
  14. MEROPEN [Concomitant]
     Indication: BRONCHITIS
     Dosage: UNK
     Route: 042
     Dates: start: 20120802, end: 20120805

REACTIONS (2)
  - Interstitial lung disease [Recovering/Resolving]
  - Cytomegalovirus infection [Recovered/Resolved]
